FAERS Safety Report 20336849 (Version 2)
Quarter: 2022Q1

REPORT INFORMATION
  Report Type: Report from Study
  Country: CN (occurrence: CN)
  Receive Date: 20220114
  Receipt Date: 20220307
  Transmission Date: 20220423
  Serious: Yes (Other)
  Sender: FDA-Public Use
  Company Number: CN-BRISTOL-MYERS SQUIBB COMPANY-BMS-2021-144545

PATIENT
  Age: 49 Year
  Sex: Female

DRUGS (1)
  1. NIVOLUMAB [Suspect]
     Active Substance: NIVOLUMAB
     Indication: Non-small cell lung cancer
     Dosage: 140 MILLIGRAM, Q3WK
     Route: 041
     Dates: start: 20210123

REACTIONS (8)
  - Immune-mediated thyroiditis [Unknown]
  - Hyperthyroidism [Unknown]
  - Myelosuppression [Unknown]
  - Leukopenia [Unknown]
  - Hypothyroidism [Unknown]
  - Face oedema [Unknown]
  - Asthenia [Unknown]
  - Off label use [Unknown]

NARRATIVE: CASE EVENT DATE: 20210401
